FAERS Safety Report 14736482 (Version 1)
Quarter: 2018Q2

REPORT INFORMATION
  Report Type: Spontaneous
  Country: US (occurrence: US)
  Receive Date: 20180403
  Receipt Date: 20180403
  Transmission Date: 20180711
  Serious: Yes (Hospitalization)
  Sender: FDA-Public Use
  Company Number: None

PATIENT
  Age: 66 Year
  Sex: Male

DRUGS (17)
  1. IMATINIB MES 400MG TAB [Suspect]
     Active Substance: IMATINIB MESYLATE
     Indication: CHRONIC MYELOID LEUKAEMIA
     Route: 048
  2. ATORVASTATIN [Concomitant]
     Active Substance: ATORVASTATIN
  3. VITAMIN D [Concomitant]
     Active Substance: CHOLECALCIFEROL
  4. METOLAZONE. [Concomitant]
     Active Substance: METOLAZONE
  5. POT CL MICRO [Concomitant]
  6. MAGNESIUM-OX [Concomitant]
  7. ELIQUIS [Concomitant]
     Active Substance: APIXABAN
  8. SPIRONOLACT [Concomitant]
     Active Substance: SPIRONOLACTONE
  9. AMOXICILLIN. [Concomitant]
     Active Substance: AMOXICILLIN
  10. KLOR-CON M20 [Concomitant]
     Active Substance: POTASSIUM CHLORIDE
  11. DIAZEPAM. [Concomitant]
     Active Substance: DIAZEPAM
  12. OSELTAMIVIR [Concomitant]
     Active Substance: OSELTAMIVIR
  13. BUDESONIDE. [Concomitant]
     Active Substance: BUDESONIDE
  14. TRIAMT/HCTZ [Concomitant]
     Active Substance: HYDROCHLOROTHIAZIDE\TRIAMTERENE
  15. LISINOPRIL. [Concomitant]
     Active Substance: LISINOPRIL
  16. METOPROLOL TARTRATE. [Concomitant]
     Active Substance: METOPROLOL TARTRATE
  17. MUPIROCIN. [Concomitant]
     Active Substance: MUPIROCIN

REACTIONS (1)
  - Hospitalisation [None]

NARRATIVE: CASE EVENT DATE: 201803
